FAERS Safety Report 8485845 (Version 6)
Quarter: 2012Q4

REPORT INFORMATION
  Report Type: 
  Country: US (occurrence: US)
  Receive Date: 20120330
  Receipt Date: 20120913
  Transmission Date: 20130627
  Serious: Yes (Hospitalization, Disabling, Other)
  Sender: FDA-Public Use
  Company Number: US-009507513-1203USA03339

PATIENT

DRUGS (13)
  1. FOSAMAX [Suspect]
     Indication: OSTEOPOROSIS
     Dosage: 10 mg, qd
     Route: 048
     Dates: start: 19990322
  2. FOSAMAX [Suspect]
     Indication: OSTEOPENIA
     Dosage: 70 mg, QW
     Route: 048
     Dates: start: 20000720, end: 201101
  3. FOSAMAX [Suspect]
     Indication: OSTEOPOROSIS
     Dosage: 70 mg, UNK
     Route: 048
     Dates: start: 20081221
  4. FOSAMAX [Suspect]
     Indication: OSTEOPENIA
  5. THERAPY UNSPECIFIED [Concomitant]
     Indication: HYPERTENSION
  6. THERAPY UNSPECIFIED [Concomitant]
     Indication: BLOOD CHOLESTEROL INCREASED
  7. HORMONES (UNSPECIFIED) [Concomitant]
     Dates: start: 199803, end: 200706
  8. MK-9278 [Concomitant]
  9. EVENING PRIMROSE OIL [Concomitant]
  10. OMEGA-3 MARINE TRIGLYCERIDES [Concomitant]
  11. VITAMIN D (UNSPECIFIED) [Concomitant]
  12. CALCIUM (UNSPECIFIED) (+) VITAMIN D (UNSPECIFIED) [Concomitant]
  13. ASPIRIN [Concomitant]

REACTIONS (39)
  - Femur fracture [Not Recovered/Not Resolved]
  - Pathological fracture [Not Recovered/Not Resolved]
  - Low turnover osteopathy [Not Recovered/Not Resolved]
  - Osteoporosis [Not Recovered/Not Resolved]
  - Stress fracture [Not Recovered/Not Resolved]
  - Femur fracture [Not Recovered/Not Resolved]
  - Cervical spinal stenosis [Unknown]
  - Syncope [Recovered/Resolved]
  - Osteoarthritis [Unknown]
  - Urticaria chronic [Not Recovered/Not Resolved]
  - Appendix disorder [Unknown]
  - Procedural pain [Unknown]
  - Fracture nonunion [Unknown]
  - Blood pressure increased [Unknown]
  - Impaired healing [Unknown]
  - Vulvovaginal discomfort [Unknown]
  - Limb deformity [Unknown]
  - Gastroenteritis viral [Unknown]
  - Arthropod sting [Unknown]
  - Cataract [Unknown]
  - Cataract [Unknown]
  - Uterine enlargement [Unknown]
  - Bursitis [Unknown]
  - Sinusitis [Unknown]
  - Rhinitis perennial [Unknown]
  - Urinary tract infection [Unknown]
  - Bladder spasm [Unknown]
  - Cystitis haemorrhagic [Unknown]
  - Oestrogen deficiency [Unknown]
  - Adverse event [Unknown]
  - Dermatitis contact [Unknown]
  - Otitis externa fungal [Recovered/Resolved]
  - Pruritus [Unknown]
  - Rash papulosquamous [Unknown]
  - Urticaria [Unknown]
  - Angioedema [Unknown]
  - Vertigo [Unknown]
  - Vertigo [Unknown]
  - Hyperlipidaemia [None]
